FAERS Safety Report 24894890 (Version 1)
Quarter: 2025Q1

REPORT INFORMATION
  Report Type: Spontaneous
  Country: JP (occurrence: JP)
  Receive Date: 20250128
  Receipt Date: 20250128
  Transmission Date: 20250409
  Serious: Yes (Other)
  Sender: AMGEN
  Company Number: JP-AMGEN-JPNSP2025016532

PATIENT
  Age: 22 Year
  Sex: Male

DRUGS (4)
  1. BUPHENYL [Suspect]
     Active Substance: SODIUM PHENYLBUTYRATE
     Indication: Argininosuccinate lyase deficiency
     Dosage: 12 GRAM, QD
     Route: 048
     Dates: start: 20160823
  2. ARGININE [Concomitant]
     Active Substance: ARGININE
     Dates: start: 20160822
  3. AMLODIPINE [Concomitant]
     Active Substance: AMLODIPINE BESYLATE
  4. NITROGLYCERIN [Concomitant]
     Active Substance: NITROGLYCERIN

REACTIONS (1)
  - Angina pectoris [Recovered/Resolved]
